FAERS Safety Report 22240476 (Version 2)
Quarter: 2023Q2

REPORT INFORMATION
  Report Type: Report from Study
  Country: US (occurrence: US)
  Receive Date: 20230421
  Receipt Date: 20230505
  Transmission Date: 20230722
  Serious: Yes (Other)
  Sender: FDA-Public Use
  Company Number: US-AMGEN-USASL2022166377

PATIENT
  Age: 33 Year
  Sex: Female

DRUGS (6)
  1. LUMAKRAS [Suspect]
     Active Substance: SOTORASIB
     Indication: Rectosigmoid cancer
     Dosage: UNK, QD
     Route: 065
     Dates: start: 202210, end: 202303
  2. LUMAKRAS [Suspect]
     Active Substance: SOTORASIB
     Indication: Metastases to liver
  3. LUMAKRAS [Suspect]
     Active Substance: SOTORASIB
     Indication: Colorectal cancer
  4. VECTIBIX [Suspect]
     Active Substance: PANITUMUMAB
     Indication: Rectosigmoid cancer
     Dosage: UNK UNK, Q2WK
     Route: 042
     Dates: start: 202210, end: 202303
  5. VECTIBIX [Suspect]
     Active Substance: PANITUMUMAB
     Indication: Metastases to liver
  6. VECTIBIX [Suspect]
     Active Substance: PANITUMUMAB
     Indication: Colorectal cancer

REACTIONS (3)
  - Colorectal cancer metastatic [Unknown]
  - Therapeutic product effect decreased [Unknown]
  - Off label use [Unknown]

NARRATIVE: CASE EVENT DATE: 20230301
